FAERS Safety Report 6228184-3 (Version None)
Quarter: 2009Q2

REPORT INFORMATION
  Report Type: 
  Country: None (occurrence: None)
  Receive Date: 20090612
  Receipt Date: 20090603
  Transmission Date: 20091009
  Serious: Yes (Life-Threatening)
  Sender: FDA-Public Use
  Company Number: DE-BIOGENIDEC-2008BI034283

PATIENT
  Age: 23 Year
  Sex: Male
  Weight: 104 kg

DRUGS (1)
  1. TYSABRI [Suspect]
     Indication: RELAPSING-REMITTING MULTIPLE SCLEROSIS
     Route: 042
     Dates: start: 20080524, end: 20081211

REACTIONS (4)
  - AGGRESSION [None]
  - BLOOD BRAIN BARRIER DEFECT [None]
  - NUCLEAR MAGNETIC RESONANCE IMAGING ABNORMAL [None]
  - PERSONALITY CHANGE [None]
